FAERS Safety Report 4668824-3 (Version None)
Quarter: 2005Q2

REPORT INFORMATION
  Report Type: 
  Country: None (occurrence: None)
  Receive Date: 20050519
  Receipt Date: 20050504
  Transmission Date: 20051028
  Serious: No
  Sender: FDA-Public Use
  Company Number: 11043

PATIENT
  Sex: Male

DRUGS (4)
  1. CISPLATIN [Suspect]
     Indication: OESOPHAGEAL CARCINOMA
     Dosage: 80 MG/M2 OTHER
     Route: 042
  2. FOLINIC ACID [Suspect]
     Indication: OESOPHAGEAL CARCINOMA
     Dosage: 30 MG OTHER
     Route: 048
  3. URACIL [Suspect]
     Route: 048
  4. TEGAFUR [Suspect]
     Indication: OESOPHAGEAL CARCINOMA
     Route: 048

REACTIONS (3)
  - DYSPHAGIA [None]
  - ODYNOPHAGIA [None]
  - OESOPHAGITIS [None]
